FAERS Safety Report 18691357 (Version 1)
Quarter: 2021Q1

REPORT INFORMATION
  Report Type: Spontaneous
  Country: JP (occurrence: JP)
  Receive Date: 20210101
  Receipt Date: 20210101
  Transmission Date: 20210419
  Serious: Yes (Death, Hospitalization, Other)
  Sender: FDA-Public Use
  Company Number: JP-BAUSCH-BL-2020-038221

PATIENT
  Age: 56 Year
  Sex: Male

DRUGS (9)
  1. METHOTREXATE. [Suspect]
     Active Substance: METHOTREXATE
     Indication: MANTLE CELL LYMPHOMA
     Dosage: R?HYPER CVAD/MA THERAPY, 4 CYCLES
     Route: 065
     Dates: start: 201910, end: 202002
  2. RITUXIMAB. [Suspect]
     Active Substance: RITUXIMAB
     Dosage: BR THERAPY
     Route: 065
     Dates: start: 20200310
  3. CYTARABINE. [Suspect]
     Active Substance: CYTARABINE
     Indication: MANTLE CELL LYMPHOMA
     Dosage: R?HYPER CVAD/MA THERAPY, 4 CYCLES
     Route: 065
     Dates: start: 201910, end: 202002
  4. CYCLOPHOSPHAMIDE. [Suspect]
     Active Substance: CYCLOPHOSPHAMIDE
     Indication: MANTLE CELL LYMPHOMA
     Dosage: R?HYPER CVAD/MA THERAPY, 4 CYCLES
     Route: 065
     Dates: start: 201910, end: 202002
  5. BENDAMUSTINE [Suspect]
     Active Substance: BENDAMUSTINE
     Indication: MANTLE CELL LYMPHOMA
     Dosage: BR THERAPY
     Route: 065
     Dates: start: 20200310
  6. DOXORUBICIN HYDROCHLORIDE. [Suspect]
     Active Substance: DOXORUBICIN HYDROCHLORIDE
     Indication: MANTLE CELL LYMPHOMA
     Dosage: R?HYPER CVAD/MA THERAPY, 4 CYCLES
     Route: 065
     Dates: start: 201910, end: 202002
  7. DEXAMETHASONE. [Suspect]
     Active Substance: DEXAMETHASONE
     Indication: MANTLE CELL LYMPHOMA
     Dosage: R?HYPER CVAD/MA THERAPY, 4 CYCLES
     Route: 065
     Dates: start: 201910, end: 202002
  8. RITUXIMAB. [Suspect]
     Active Substance: RITUXIMAB
     Indication: MANTLE CELL LYMPHOMA
     Dosage: R?HYPER CVAD/MA THERAPY, 4 CYCLES
     Route: 065
     Dates: start: 201910, end: 202002
  9. VINCRISTINE SULFATE. [Suspect]
     Active Substance: VINCRISTINE SULFATE
     Indication: MANTLE CELL LYMPHOMA
     Dosage: R?HYPER CVAD/MA THERAPY, 4 CYCLES
     Route: 065
     Dates: start: 201910, end: 202002

REACTIONS (2)
  - Myelosuppression [Recovering/Resolving]
  - COVID-19 [Fatal]

NARRATIVE: CASE EVENT DATE: 2020
